FAERS Safety Report 18858309 (Version 1)
Quarter: 2021Q1

REPORT INFORMATION
  Report Type: Spontaneous
  Country: GB (occurrence: GB)
  Receive Date: 20210208
  Receipt Date: 20210208
  Transmission Date: 20210420
  Serious: Yes (Hospitalization, Other)
  Sender: FDA-Public Use
  Company Number: GB-ROCHE-2760558

PATIENT
  Age: 17 Year
  Sex: Male

DRUGS (3)
  1. TRANEXAMIC ACID. [Concomitant]
     Active Substance: TRANEXAMIC ACID
  2. NOVOSEVEN [Concomitant]
     Active Substance: COAGULATION FACTOR VIIA RECOMBINANT HUMAN
  3. EMICIZUMAB. [Suspect]
     Active Substance: EMICIZUMAB
     Indication: FACTOR VIII DEFICIENCY
     Route: 065

REACTIONS (11)
  - Groin pain [Unknown]
  - C-reactive protein increased [Unknown]
  - Sepsis [Unknown]
  - Suprapubic pain [Unknown]
  - Weight decreased [Unknown]
  - Malnutrition [Unknown]
  - Small intestinal obstruction [Unknown]
  - Vomiting [Unknown]
  - Pelvic fluid collection [Unknown]
  - Pyrexia [Unknown]
  - Tachycardia [Unknown]
